FAERS Safety Report 25109758 (Version 2)
Quarter: 2025Q1

REPORT INFORMATION
  Report Type: Report from Study
  Country: IE (occurrence: IE)
  Receive Date: 20250324
  Receipt Date: 20250326
  Transmission Date: 20250409
  Serious: Yes (Other)
  Sender: NOVARTIS
  Company Number: IE-002147023-NVSC2024IE200924

PATIENT
  Age: 61 Year
  Sex: Female

DRUGS (1)
  1. COSENTYX [Suspect]
     Active Substance: SECUKINUMAB
     Indication: Psoriatic arthropathy
     Dosage: 300 MG, QMO
     Route: 065
     Dates: start: 20240611

REACTIONS (5)
  - Lower respiratory tract infection [Recovering/Resolving]
  - Nasopharyngitis [Recovered/Resolved]
  - Productive cough [Unknown]
  - Sinus disorder [Unknown]
  - Illness [Unknown]

NARRATIVE: CASE EVENT DATE: 20250201
